FAERS Safety Report 17055236 (Version 1)
Quarter: 2019Q4

REPORT INFORMATION
  Report Type: Report from Study
  Country: FR (occurrence: FR)
  Receive Date: 20191120
  Receipt Date: 20191120
  Transmission Date: 20200122
  Serious: Yes (Death, Other)
  Sender: FDA-Public Use
  Company Number: FR-JAZZ-2019-FR-008008

PATIENT

DRUGS (2)
  1. DEFITELIO [Suspect]
     Active Substance: DEFIBROTIDE SODIUM
     Indication: PROPHYLAXIS
     Dosage: UNK
     Dates: start: 20140824, end: 2014
  2. DEFITELIO [Suspect]
     Active Substance: DEFIBROTIDE SODIUM
     Dosage: UNK
     Dates: start: 2014, end: 20140915

REACTIONS (2)
  - Off label use [Unknown]
  - Medulloblastoma recurrent [Fatal]

NARRATIVE: CASE EVENT DATE: 20140824
